FAERS Safety Report 10419085 (Version 1)
Quarter: 2014Q2

REPORT INFORMATION
  Report Type: Spontaneous
  Country: US (occurrence: None)
  Receive Date: 20140625
  Receipt Date: 20140625
  Transmission Date: 20141212
  Serious: No
  Sender: FDA-Public Use
  Company Number: A-NJ2014-97212

PATIENT
  Age: 69 Year
  Sex: Female

DRUGS (3)
  1. OPSUMIT [Suspect]
     Indication: PULMONARY ARTERIAL HYPERTENSION
     Route: 048
     Dates: start: 20131214
  2. ADCIRCA [Concomitant]
  3. WARFARIN [Concomitant]

REACTIONS (4)
  - Fall [None]
  - Insomnia [None]
  - Musculoskeletal pain [None]
  - Arthralgia [None]
